FAERS Safety Report 10401022 (Version 1)
Quarter: 2014Q3

REPORT INFORMATION
  Report Type: Spontaneous
  Country: JP (occurrence: JP)
  Receive Date: 20140821
  Receipt Date: 20140821
  Transmission Date: 20150326
  Serious: Yes (Hospitalization)
  Sender: FDA-Public Use
  Company Number: JP-ROCHE-1452162

PATIENT
  Age: 7 Year
  Sex: Female
  Weight: 20 kg

DRUGS (3)
  1. MEIACT [Concomitant]
     Active Substance: CEFDITOREN PIVOXIL
     Dosage: DOSAGE IS UNCERTAIN.
     Route: 048
     Dates: start: 20140605
  2. ZITHROMAX [Suspect]
     Active Substance: AZITHROMYCIN DIHYDRATE
     Indication: PHARYNGITIS
     Dosage: DOSAGE IS UNCERTAIN.??OTHER PURPOSES: LYMPHADENITIS CERVICAL
     Route: 048
     Dates: start: 20140602, end: 201406
  3. ROCEPHIN [Suspect]
     Active Substance: CEFTRIAXONE SODIUM
     Indication: PHARYNGITIS
     Dosage: OTHER PURPOSES: LYMPHADENITIS CERVICAL
     Route: 041
     Dates: start: 20140604, end: 20140605

REACTIONS (2)
  - Drug eruption [Recovered/Resolved]
  - Drug-induced liver injury [Recovering/Resolving]

NARRATIVE: CASE EVENT DATE: 20140604
